FAERS Safety Report 12667386 (Version 3)
Quarter: 2016Q3

REPORT INFORMATION
  Report Type: Spontaneous
  Country: US (occurrence: US)
  Receive Date: 20160819
  Receipt Date: 20160923
  Transmission Date: 20161109
  Serious: No
  Sender: FDA-Public Use
  Company Number: US-PFIZER INC-2016377774

PATIENT
  Age: 73 Year
  Sex: Female
  Weight: 49.43 kg

DRUGS (23)
  1. FENTANYL. [Concomitant]
     Active Substance: FENTANYL
     Dosage: 1 DF, UNK (100 MCG/HR TRANSDERMAL PATCH APPLY 1 PATCH (ES) EVERY 72 HOURS)
     Route: 062
  2. ONDANSETRON [Concomitant]
     Active Substance: ONDANSETRON
     Dosage: 8 MG, 3X/DAY (PLACE 1 TABLET(S) EVERY 8 HOURS BY TRANS LINGUAL ROUTE )
     Route: 060
  3. IBRANCE [Suspect]
     Active Substance: PALBOCICLIB
     Indication: NEOPLASM MALIGNANT
     Dosage: 1 DF, DAILY
     Dates: end: 2015
  4. DRONABINOL. [Concomitant]
     Active Substance: DRONABINOL
     Dosage: 2.5 MG, UNK
     Route: 048
  5. LIDOCAINE. [Concomitant]
     Active Substance: LIDOCAINE
     Dosage: 5 %, 1X/DAY
     Route: 062
  6. ENSURE ACTIVE [Concomitant]
     Dosage: 100 ML, 3X/DAY (100 ML 3 TIMES A DAY BY ORAL ROUTE AS DIRECTED )
     Route: 048
  7. NITROFURANTOIN MONOHYDRATE MACROCRYSTALS [Concomitant]
     Active Substance: NITROFURANTOIN\NITROFURANTOIN MONOHYDRATE
     Dosage: 100 MG, UNK
  8. PHENADOZ [Concomitant]
     Active Substance: PROMETHAZINE HYDROCHLORIDE
     Indication: NAUSEA
     Dosage: 25 MG, AS NEEDED (1 SUPPOSITORY EVERY 8 HOURS AS NEEDED )
     Route: 054
  9. CONSTULOSE [Concomitant]
     Active Substance: LACTULOSE
     Dosage: 15 ML, DAILY (10 GRAM/15 ML ORAL SOLUTION TAKE 15 ML EVERY DAY BY ORAL ROUTE)
     Route: 048
  10. ACETAMINOPHEN W/HYDROCODONE [Concomitant]
     Active Substance: ACETAMINOPHEN\HYDROCODONE
     Dosage: 1 DF, UNK (HYDROCODONE 10 MG-ACETAMINOPHEN 325 MG ) (TAKE 1 TABLET(S) EVERY 4 HOURS )
     Route: 048
  11. IBRANCE [Suspect]
     Active Substance: PALBOCICLIB
     Indication: BREAST CANCER
     Dosage: 100 MG, CYCLIC (DAY 1-21 Q 28 DAYS)
     Route: 048
     Dates: start: 20160809
  12. AFINITOR [Concomitant]
     Active Substance: EVEROLIMUS
     Dosage: 5 MG, DAILY (EVERY DAY BY ORAL ROUTE FOR 30 DAYS)
     Route: 048
  13. ESCITALOPRAM [Concomitant]
     Active Substance: ESCITALOPRAM OXALATE
     Dosage: 10 MG, UNK
  14. LETROZOLE. [Concomitant]
     Active Substance: LETROZOLE
     Dosage: 2.5 MG, DAILY
     Route: 048
  15. METRONIDAZOLE. [Concomitant]
     Active Substance: METRONIDAZOLE
     Dosage: 500 MG, UNK
  16. MIRTAZAPINE. [Concomitant]
     Active Substance: MIRTAZAPINE
     Dosage: 30 MG, 1X/DAY (EVERY DAY BY TRANS LINGUAL ROUTE AT BEDTIME FOR 30 DAYS)
     Route: 060
  17. OMEPRAZOLE. [Concomitant]
     Active Substance: OMEPRAZOLE
     Dosage: 20 MG, UNK
  18. ALPRAZOLAM. [Concomitant]
     Active Substance: ALPRAZOLAM
     Dosage: 0.5 MG, UNK
  19. FENTANYL. [Concomitant]
     Active Substance: FENTANYL
     Dosage: 1 DF, UNK (25 MCG/HR TRANSDERMAL PATCH APPLY 1 PATCH (ES) EVERY 72 HOURS)
     Route: 062
  20. CEPHALEXIN. [Concomitant]
     Active Substance: CEPHALEXIN
     Dosage: 500 MG, 2X/DAY (TAKE 1 CAPSULE (S) EVERY 12 HOURS BY ORAL ROUTE FOR 14 DAYS)
     Route: 048
  21. MEGESTROL [Concomitant]
     Active Substance: MEGESTROL
     Dosage: 10 ML, 2X/DAY (400 MG/10 ML (40 MG/ML)
     Route: 048
  22. ONDANSETRON [Concomitant]
     Active Substance: ONDANSETRON
     Dosage: 4 MG, UNK
  23. PHENADOZ [Concomitant]
     Active Substance: PROMETHAZINE HYDROCHLORIDE
     Indication: VOMITING

REACTIONS (1)
  - Neoplasm progression [Unknown]
